FAERS Safety Report 7753820-X (Version None)
Quarter: 2011Q3

REPORT INFORMATION
  Report Type: 
  Country: None (occurrence: None)
  Receive Date: 20110915
  Receipt Date: 20110909
  Transmission Date: 20111222
  Serious: Yes (Hospitalization)
  Sender: FDA-Public Use
  Company Number: FR-MERCK-1107FRA00120

PATIENT
  Age: 87 Year
  Sex: Female

DRUGS (11)
  1. ACETYLLEUCINE [Concomitant]
     Indication: DIZZINESS
     Route: 048
  2. GLICLAZIDE [Concomitant]
     Indication: DIABETES MELLITUS
     Route: 048
  3. FOSAMAX PLUS D [Suspect]
     Indication: OSTEOPOROSIS
     Route: 048
     Dates: start: 20071001, end: 20080701
  4. EZETIMIBE [Concomitant]
     Indication: HYPERCHOLESTEROLAEMIA
     Route: 048
  5. AMIODARONE [Concomitant]
     Route: 048
  6. LEVOTHYROXINE SODIUM [Concomitant]
     Indication: HYPOTHYROIDISM
     Route: 048
  7. ASPIRIN LYSINE [Concomitant]
     Route: 048
  8. FOSAMAX PLUS D [Suspect]
     Route: 048
     Dates: start: 20110601, end: 20110801
  9. FOSAMAX PLUS D [Suspect]
     Route: 048
     Dates: start: 20060701, end: 20060901
  10. ALTHIAZIDE AND SPIRONOLACTONE [Suspect]
     Route: 048
     Dates: end: 20110801
  11. POTASSIUM CHLORIDE [Concomitant]
     Route: 048

REACTIONS (3)
  - GOUT [None]
  - ARTHRALGIA [None]
  - JOINT SWELLING [None]
